FAERS Safety Report 9203884 (Version 1)
Quarter: 2013Q2

REPORT INFORMATION
  Report Type: Spontaneous
  Country: DE (occurrence: DE)
  Receive Date: 20130402
  Receipt Date: 20130402
  Transmission Date: 20140414
  Serious: Yes (Hospitalization)
  Sender: FDA-Public Use
  Company Number: DE-PFIZER INC-2013101260

PATIENT
  Age: 30 Year
  Sex: Male
  Weight: 64 kg

DRUGS (1)
  1. UNACID [Suspect]
     Indication: ERYSIPELAS
     Dosage: 3 G, 3X/DAY
     Route: 042
     Dates: start: 20121121, end: 20121126

REACTIONS (1)
  - Rash maculo-papular [Recovering/Resolving]
